FAERS Safety Report 9075100 (Version 4)
Quarter: 2013Q2

REPORT INFORMATION
  Report Type: Spontaneous
  Country: JP (occurrence: JP)
  Receive Date: 20130129
  Receipt Date: 20130409
  Transmission Date: 20140414
  Serious: Yes (Other)
  Sender: FDA-Public Use
  Company Number: JP-JNJFOC-20130112779

PATIENT
  Age: 22 Year
  Sex: Male
  Weight: 53 kg

DRUGS (13)
  1. REMICADE [Suspect]
     Indication: CROHN^S DISEASE
     Route: 042
     Dates: start: 20100616
  2. REMICADE [Suspect]
     Indication: CROHN^S DISEASE
     Route: 042
     Dates: start: 20101111
  3. REMICADE [Suspect]
     Indication: CROHN^S DISEASE
     Dosage: 15TH DOSE
     Route: 042
     Dates: start: 20120227
  4. REMICADE [Suspect]
     Indication: CROHN^S DISEASE
     Dosage: 16TH DOSE
     Route: 042
  5. REMICADE [Suspect]
     Indication: CROHN^S DISEASE
     Route: 042
     Dates: start: 20120607
  6. BAKTAR [Concomitant]
     Indication: INFECTION PROPHYLAXIS
     Route: 048
  7. PREDONINE [Concomitant]
     Indication: RETINAL VASCULITIS
     Route: 048
  8. SULFAMETHOXAZOLE [Concomitant]
     Indication: PROPHYLAXIS
  9. ELENTAL [Concomitant]
     Indication: CROHN^S DISEASE
     Route: 048
  10. PENTASA [Concomitant]
     Indication: CROHN^S DISEASE
     Route: 048
  11. METHYCOBAL [Concomitant]
     Indication: NEUROPATHY PERIPHERAL
     Route: 048
     Dates: start: 20100625, end: 20100922
  12. GASTROM [Concomitant]
     Indication: OESOPHAGEAL ULCER
     Route: 048
     Dates: start: 20110223, end: 20110308
  13. PROTECADIN [Concomitant]
     Indication: GASTRITIS
     Route: 048
     Dates: start: 20120426, end: 20120926

REACTIONS (3)
  - Papillophlebitis [Recovering/Resolving]
  - Retinal vein occlusion [Recovering/Resolving]
  - Macular oedema [Unknown]
